FAERS Safety Report 6315562-7 (Version None)
Quarter: 2009Q3

REPORT INFORMATION
  Report Type: 
  Country: None (occurrence: None)
  Receive Date: 20090818
  Receipt Date: 19930801
  Transmission Date: 20100115
  Serious: Yes (Other)
  Sender: FDA-Public Use
  Company Number: 2009009199

PATIENT
  Age: 61 Year
  Sex: Female

DRUGS (10)
  1. MODAFINIL [Suspect]
     Indication: CATAPLEXY
     Dosage: 1 DOSAGE FORMS (1 DOSAGE FORMS, 1 IN 1 D), ORAL; 2 DOSAGE FORMS (1 DOSAGE FORMS, 2 IN 1 D), ORAL; 1
     Route: 048
     Dates: start: 19930101
  2. MODAFINIL [Suspect]
     Indication: NARCOLEPSY
     Dosage: 1 DOSAGE FORMS (1 DOSAGE FORMS, 1 IN 1 D), ORAL; 2 DOSAGE FORMS (1 DOSAGE FORMS, 2 IN 1 D), ORAL; 1
     Route: 048
     Dates: start: 19930101
  3. MODAFINIL [Suspect]
     Indication: CATAPLEXY
     Dosage: 1 DOSAGE FORMS (1 DOSAGE FORMS, 1 IN 1 D), ORAL; 2 DOSAGE FORMS (1 DOSAGE FORMS, 2 IN 1 D), ORAL; 1
     Route: 048
     Dates: start: 19950615
  4. MODAFINIL [Suspect]
     Indication: NARCOLEPSY
     Dosage: 1 DOSAGE FORMS (1 DOSAGE FORMS, 1 IN 1 D), ORAL; 2 DOSAGE FORMS (1 DOSAGE FORMS, 2 IN 1 D), ORAL; 1
     Route: 048
     Dates: start: 19950615
  5. MODAFINIL [Suspect]
     Indication: CATAPLEXY
     Dosage: 1 DOSAGE FORMS (1 DOSAGE FORMS, 1 IN 1 D), ORAL; 2 DOSAGE FORMS (1 DOSAGE FORMS, 2 IN 1 D), ORAL; 1
     Route: 048
     Dates: start: 19950809
  6. MODAFINIL [Suspect]
     Indication: NARCOLEPSY
     Dosage: 1 DOSAGE FORMS (1 DOSAGE FORMS, 1 IN 1 D), ORAL; 2 DOSAGE FORMS (1 DOSAGE FORMS, 2 IN 1 D), ORAL; 1
     Route: 048
     Dates: start: 19950809
  7. LEVOTHYROXINE SODIUM [Suspect]
  8. TOFRANIL [Concomitant]
  9. OLMIFON (ADRAFINIL) [Concomitant]
  10. SELEGILINE HCL [Concomitant]

REACTIONS (4)
  - ALANINE AMINOTRANSFERASE INCREASED [None]
  - ASPARTATE AMINOTRANSFERASE INCREASED [None]
  - GAMMA-GLUTAMYLTRANSFERASE INCREASED [None]
  - HEPATITIS [None]
